FAERS Safety Report 13489608 (Version 3)
Quarter: 2017Q3

REPORT INFORMATION
  Report Type: Report from Study
  Country: US (occurrence: US)
  Receive Date: 20170427
  Receipt Date: 20170920
  Transmission Date: 20171127
  Serious: Yes (Other)
  Sender: FDA-Public Use
  Company Number: US-SA-2017SA071582

PATIENT
  Age: 59 Year
  Sex: Female

DRUGS (1)
  1. LEMTRADA [Suspect]
     Active Substance: ALEMTUZUMAB
     Indication: MULTIPLE SCLEROSIS
     Route: 041
     Dates: start: 20170306, end: 20170310

REACTIONS (6)
  - Autoimmune disorder [Unknown]
  - Tooth abscess [Not Recovered/Not Resolved]
  - Dental care [Recovered/Resolved]
  - Hyperthyroidism [Recovering/Resolving]
  - Clostridium difficile infection [Not Recovered/Not Resolved]
  - Oral surgery [Recovered/Resolved]

NARRATIVE: CASE EVENT DATE: 201706
